FAERS Safety Report 6719861-6 (Version None)
Quarter: 2010Q2

REPORT INFORMATION
  Report Type: 
  Country: None (occurrence: None)
  Receive Date: 20100511
  Receipt Date: 20100426
  Transmission Date: 20101027
  Serious: No
  Sender: FDA-Public Use
  Company Number: IL-BIOGENIDEC-2010BI012329

PATIENT
  Age: 53 Year
  Sex: Female

DRUGS (13)
  1. TYSABRI [Suspect]
     Indication: RELAPSING-REMITTING MULTIPLE SCLEROSIS
     Route: 042
     Dates: start: 20100210
  2. FOLEX [Concomitant]
  3. GASTRO [Concomitant]
  4. ASPIRIN [Concomitant]
  5. SIMOVIL [Concomitant]
  6. BACLOSAL [Concomitant]
  7. VITAMIN TRIPLE B [Concomitant]
  8. FERROGRAD FOLIC [Concomitant]
  9. VIEPAX [Concomitant]
  10. VITAMIN E [Concomitant]
  11. PROVIGIL [Concomitant]
  12. VITAMIN D3 [Concomitant]
  13. LYRICA [Concomitant]

REACTIONS (5)
  - BALANCE DISORDER [None]
  - DIZZINESS [None]
  - FEELING HOT [None]
  - HEADACHE [None]
  - HYPERHIDROSIS [None]
